FAERS Safety Report 19140166 (Version 1)
Quarter: 2021Q2

REPORT INFORMATION
  Report Type: Spontaneous
  Country: US (occurrence: US)
  Receive Date: 20210415
  Receipt Date: 20210415
  Transmission Date: 20210717
  Serious: Yes (Hospitalization)
  Sender: FDA-Public Use
  Company Number: US-GW PHARMA-202104USGW01553

PATIENT

DRUGS (1)
  1. EPIDIOLEX [Suspect]
     Active Substance: CANNABIDIOL
     Indication: TUBEROUS SCLEROSIS COMPLEX
     Dosage: 90 MILLIGRAM, TID
     Route: 048
     Dates: start: 20200117

REACTIONS (3)
  - Off label use [Unknown]
  - Anaesthesia [Unknown]
  - Dental operation [Unknown]
